FAERS Safety Report 23225179 (Version 2)
Quarter: 2023Q4

REPORT INFORMATION
  Report Type: Other
  Country: US (occurrence: None)
  Receive Date: 20231124
  Receipt Date: 20231127
  Transmission Date: 20240110
  Serious: Yes (Hospitalization)
  Sender: FDA-Public Use
  Company Number: US-ROCHE-3462699

PATIENT
  Age: 68 Year
  Sex: Female
  Weight: 59.928 kg

DRUGS (3)
  1. RITUXAN [Suspect]
     Active Substance: RITUXIMAB
     Indication: Rheumatoid arthritis
     Dosage: ANTICIPATED DATE OF TREATMENT: 15/SEP/2023
     Route: 042
     Dates: end: 2021
  2. LEFLUNOMIDE [Concomitant]
     Active Substance: LEFLUNOMIDE
     Route: 048
  3. DOXYCYCLINE [Concomitant]
     Active Substance: DOXYCYCLINE
     Route: 048
     Dates: start: 2021

REACTIONS (4)
  - C-reactive protein increased [Recovered/Resolved]
  - Infection [Recovered/Resolved]
  - Respiratory syncytial virus infection [Unknown]
  - COVID-19 [Unknown]

NARRATIVE: CASE EVENT DATE: 20210921
